FAERS Safety Report 23683314 (Version 1)
Quarter: 2024Q1

REPORT INFORMATION
  Report Type: Spontaneous
  Country: BR (occurrence: BR)
  Receive Date: 20240328
  Receipt Date: 20240328
  Transmission Date: 20240409
  Serious: Yes (Hospitalization, Other)
  Sender: FDA-Public Use
  Company Number: BR-002147023-NVSC2024BR063798

PATIENT
  Sex: Male

DRUGS (1)
  1. TRILEPTAL [Suspect]
     Active Substance: OXCARBAZEPINE
     Indication: Product used for unknown indication
     Dosage: 600 MG (60 TABLETS)
     Route: 065

REACTIONS (4)
  - Abnormal behaviour [Unknown]
  - Emotional disorder [Unknown]
  - Seizure [Unknown]
  - Product availability issue [Unknown]
